FAERS Safety Report 10302761 (Version 1)
Quarter: 2014Q3

REPORT INFORMATION
  Report Type: Spontaneous
  Country: US (occurrence: US)
  Receive Date: 20140714
  Receipt Date: 20140714
  Transmission Date: 20150326
  Serious: Yes (Hospitalization, Congenital Anomaly)
  Sender: FDA-Public Use
  Company Number: US-GLAXOSMITHKLINE-A1080572A

PATIENT
  Age: 0 Day
  Sex: Male
  Weight: 2.6 kg

DRUGS (1)
  1. ZOFRAN [Suspect]
     Active Substance: ONDANSETRON HYDROCHLORIDE
     Indication: NAUSEA
     Dosage: 4MG TWICE PER DAY
     Route: 064
     Dates: start: 200901, end: 200905

REACTIONS (9)
  - Congenital eye disorder [Not Recovered/Not Resolved]
  - Craniofacial deformity [Not Recovered/Not Resolved]
  - Low birth weight baby [Not Recovered/Not Resolved]
  - Facial nerve disorder [Not Recovered/Not Resolved]
  - Lipoatrophy [Not Recovered/Not Resolved]
  - Twin pregnancy [Unknown]
  - Foetal exposure during pregnancy [Unknown]
  - Off label use [Unknown]
  - Congenital jaw malformation [Not Recovered/Not Resolved]

NARRATIVE: CASE EVENT DATE: 20090801
